FAERS Safety Report 18525509 (Version 2)
Quarter: 2020Q4

REPORT INFORMATION
  Report Type: Report from Study
  Country: CN (occurrence: CN)
  Receive Date: 20201119
  Receipt Date: 20201229
  Transmission Date: 20210114
  Serious: Yes (Hospitalization, Other)
  Sender: FDA-Public Use
  Company Number: CN-BAXTER-2020BAX023069

PATIENT
  Age: 56 Year
  Sex: Female

DRUGS (13)
  1. PEGFILGRASTIM [Suspect]
     Active Substance: PEGFILGRASTIM
     Indication: PRODUCT USED FOR UNKNOWN INDICATION
     Route: 058
  2. PEGFILGRASTIM [Suspect]
     Active Substance: PEGFILGRASTIM
     Dosage: CYCLE 4, VISIT 2
     Route: 065
     Dates: start: 20200212
  3. PEGFILGRASTIM [Suspect]
     Active Substance: PEGFILGRASTIM
     Dosage: CYCLE 5, VISIT 1
     Route: 065
     Dates: start: 20200307
  4. ENDOXAN [Suspect]
     Active Substance: CYCLOPHOSPHAMIDE
     Indication: TRIPLE NEGATIVE BREAST CANCER
     Route: 042
     Dates: start: 20200122
  5. ATEZOLIZUMAB. [Suspect]
     Active Substance: ATEZOLIZUMAB
     Dosage: MOST RECENT DOSE PRIOR TO SAE
     Route: 042
     Dates: start: 20200505
  6. PACLITAXEL. [Suspect]
     Active Substance: PACLITAXEL
     Indication: TRIPLE NEGATIVE BREAST CANCER
     Route: 042
     Dates: start: 20190916
  7. PEGFILGRASTIM [Suspect]
     Active Substance: PEGFILGRASTIM
     Dosage: CYCLE 5, VISIT 2
     Route: 065
     Dates: start: 20200328
  8. ENDOXAN [Suspect]
     Active Substance: CYCLOPHOSPHAMIDE
     Dosage: MOST RECENT DOSE PRIOR TO SAE ONSET
     Route: 042
     Dates: start: 20200327
  9. PACLITAXEL. [Suspect]
     Active Substance: PACLITAXEL
     Dosage: MOST RECENT DOSE PRIOR TO SERIOUS ADVERSE EVENT (SAE) ONSET
     Route: 042
     Dates: start: 20200115
  10. EPIRUBICIN [Suspect]
     Active Substance: EPIRUBICIN
     Indication: TRIPLE NEGATIVE BREAST CANCER
     Route: 042
     Dates: start: 20200122
  11. ATEZOLIZUMAB. [Suspect]
     Active Substance: ATEZOLIZUMAB
     Indication: TRIPLE NEGATIVE BREAST CANCER
     Route: 042
     Dates: start: 20190916
  12. PEGFILGRASTIM [Suspect]
     Active Substance: PEGFILGRASTIM
     Dosage: CYCLE 4, VISIT 1
     Route: 065
     Dates: start: 20200123
  13. EPIRUBICIN [Suspect]
     Active Substance: EPIRUBICIN
     Dosage: MOST RECENT DOSE PRIOR TO SAE ONSET
     Route: 042
     Dates: start: 20200327

REACTIONS (2)
  - Myocarditis [Recovering/Resolving]
  - Hypothyroidism [Unknown]

NARRATIVE: CASE EVENT DATE: 20200602
